FAERS Safety Report 7677717-9 (Version None)
Quarter: 2011Q3

REPORT INFORMATION
  Report Type: 
  Country: None (occurrence: None)
  Receive Date: 20110811
  Receipt Date: 20110808
  Transmission Date: 20111222
  Serious: Yes (Life-Threatening, Other)
  Sender: FDA-Public Use
  Company Number: PHEH2011US01096

PATIENT
  Sex: Female
  Weight: 95.692 kg

DRUGS (1)
  1. GILENYA [Suspect]
     Indication: MULTIPLE SCLEROSIS
     Dosage: 0.5 MG, QD
     Dates: start: 20110318

REACTIONS (5)
  - DYSPNOEA [None]
  - FEELING ABNORMAL [None]
  - APPARENT DEATH [None]
  - GAIT DISTURBANCE [None]
  - MENTAL IMPAIRMENT [None]
